FAERS Safety Report 7569436-4 (Version None)
Quarter: 2011Q2

REPORT INFORMATION
  Report Type: 
  Country: None (occurrence: None)
  Receive Date: 20110624
  Receipt Date: 20110615
  Transmission Date: 20111010
  Serious: Yes (Hospitalization)
  Sender: FDA-Public Use
  Company Number: US-BIOGENIDEC-2010BI018949

PATIENT
  Age: 61 Year
  Sex: Female
  Weight: 86 kg

DRUGS (1)
  1. TYSABRI [Suspect]
     Indication: MULTIPLE SCLEROSIS
     Route: 042
     Dates: start: 20080929

REACTIONS (17)
  - MUSCLE SPASMS [None]
  - MIDDLE INSOMNIA [None]
  - MULTIPLE SCLEROSIS [None]
  - STRESS [None]
  - PARALYSIS [None]
  - BURNING SENSATION [None]
  - SPINAL FRACTURE [None]
  - MUSCULAR WEAKNESS [None]
  - PARAESTHESIA [None]
  - FALL [None]
  - BACK PAIN [None]
  - MEMORY IMPAIRMENT [None]
  - GAIT DISTURBANCE [None]
  - LIMB CRUSHING INJURY [None]
  - HEART VALVE INCOMPETENCE [None]
  - HEART RATE INCREASED [None]
  - LOSS OF CONSCIOUSNESS [None]
